FAERS Safety Report 12850408 (Version 1)
Quarter: 2016Q4

REPORT INFORMATION
  Report Type: Report from Study
  Country: JP (occurrence: JP)
  Receive Date: 20161014
  Receipt Date: 20161014
  Transmission Date: 20170207
  Serious: Yes (Other)
  Sender: FDA-Public Use
  Company Number: JP-DSJP-DSJ-2016-116105

PATIENT

DRUGS (15)
  1. NEXIUM [Concomitant]
     Active Substance: ESOMEPRAZOLE MAGNESIUM
     Dosage: 20MG/DAY
     Route: 048
     Dates: start: 20151120
  2. TAMSULOSIN HYDROCHLORIDE. [Concomitant]
     Active Substance: TAMSULOSIN HYDROCHLORIDE
     Dosage: 0.2MG/DAY
     Route: 048
     Dates: start: 20151120
  3. LOTRIGA [Concomitant]
     Active Substance: OMEGA-3-ACID ETHYL ESTERS
     Dosage: 2G/DAY
     Route: 048
  4. PLAVIX [Concomitant]
     Active Substance: CLOPIDOGREL BISULFATE
     Dosage: 75MG/DAY
     Route: 048
     Dates: end: 20151021
  5. EFIENT [Suspect]
     Active Substance: PRASUGREL HYDROCHLORIDE
     Indication: PRODUCT USED FOR UNKNOWN INDICATION
     Dosage: 3.75 MG, QD
     Route: 048
     Dates: start: 20151009
  6. BAYASPIRIN [Suspect]
     Active Substance: ASPIRIN
     Dosage: 100MG/DAY
     Route: 048
     Dates: start: 20151009
  7. AVAPRO [Concomitant]
     Active Substance: IRBESARTAN
     Dosage: 100MG/DAY
     Route: 048
     Dates: end: 20151021
  8. ADALAT [Concomitant]
     Active Substance: NIFEDIPINE
     Dosage: 40MG/DAY
     Route: 048
     Dates: end: 20151021
  9. SERMION                            /00396401/ [Concomitant]
     Active Substance: NICERGOLINE
     Dosage: 15MG/DAY
     Route: 048
     Dates: end: 20151021
  10. ALLELOCK [Concomitant]
     Active Substance: OLOPATADINE HYDROCHLORIDE
     Dosage: 5MG/DAY
     Route: 048
  11. BETANIS [Concomitant]
     Active Substance: MIRABEGRON
     Dosage: 50MG/DAY
     Route: 048
     Dates: start: 20151120
  12. DORNER [Concomitant]
     Active Substance: BERAPROST SODIUM
     Dosage: 60MG/DAY
     Route: 048
     Dates: start: 20150721, end: 20151015
  13. EDOXABAN [Suspect]
     Active Substance: EDOXABAN TOSYLATE
     Indication: DEEP VEIN THROMBOSIS
     Dosage: 60 MG, QD
     Route: 048
     Dates: start: 20150522, end: 20150929
  14. ARTIST [Concomitant]
     Active Substance: CARVEDILOL
     Dosage: 3.75MG/DAY
     Route: 048
     Dates: start: 20151120
  15. LASIX [Concomitant]
     Active Substance: FUROSEMIDE
     Dosage: 20MG/DAY
     Route: 048
     Dates: start: 20151120

REACTIONS (3)
  - Angina unstable [Recovering/Resolving]
  - Haematuria [Recovered/Resolved]
  - Mouth haemorrhage [Recovered/Resolved]

NARRATIVE: CASE EVENT DATE: 20150926
